FAERS Safety Report 5214530-6 (Version None)
Quarter: 2007Q1

REPORT INFORMATION
  Report Type: 
  Country: None (occurrence: None)
  Receive Date: 20061113
  Receipt Date: 20060718
  Transmission Date: 20070707
  Serious: Yes (Other)
  Sender: FDA-Public Use
  Company Number: 146663USA

PATIENT
  Age: 49 Year
  Sex: Female
  Weight: 81.1939 kg

DRUGS (3)
  1. GEMFIBROZIL 600MG TABLETS (GEMFIBROZIL) [Suspect]
     Indication: BLOOD CHOLESTEROL INCREASED
     Dosage: 600 MG, ORAL
     Route: 048
     Dates: start: 20060101, end: 20060714
  2. SPIRONOLACTONE [Concomitant]
  3. NIFEDIPINE [Concomitant]

REACTIONS (1)
  - VISION BLURRED [None]
